FAERS Safety Report 7494191-6 (Version None)
Quarter: 2011Q2

REPORT INFORMATION
  Report Type: 
  Country: None (occurrence: None)
  Receive Date: 20110520
  Receipt Date: 20110507
  Transmission Date: 20111010
  Serious: Yes (Hospitalization)
  Sender: FDA-Public Use
  Company Number: DE-JNJFOC-20110508228

PATIENT
  Age: 3 Year
  Sex: Male

DRUGS (2)
  1. ZYRTEC [Suspect]
     Indication: ACCIDENTAL EXPOSURE
     Dosage: TEN MILLILITERS AT MOST
     Route: 048
  2. ZYRTEC [Suspect]
     Route: 048

REACTIONS (1)
  - ACCIDENTAL EXPOSURE [None]
